FAERS Safety Report 5265242-4 (Version None)
Quarter: 2007Q1

REPORT INFORMATION
  Report Type: 
  Country: None (occurrence: None)
  Receive Date: 20061213
  Receipt Date: 20040625
  Transmission Date: 20070707
  Serious: Yes (Other)
  Sender: FDA-Public Use
  Company Number: 2004UW13214

PATIENT
  Age: 80 Year
  Sex: Male
  Weight: 95.2554 kg

DRUGS (4)
  1. IRESSA [Suspect]
     Indication: NON-SMALL CELL LUNG CANCER
     Dosage: 250 MG PO
     Route: 048
     Dates: start: 20040615
  2. NIFEDICAL [Concomitant]
  3. NIFEDIPINE [Concomitant]
  4. MUCINEX [Concomitant]

REACTIONS (3)
  - ASTHENIA [None]
  - FATIGUE [None]
  - HEADACHE [None]
